FAERS Safety Report 17692108 (Version 3)
Quarter: 2020Q2

REPORT INFORMATION
  Report Type: Spontaneous
  Country: US (occurrence: US)
  Receive Date: 20200422
  Receipt Date: 20200504
  Transmission Date: 20200714
  Serious: No
  Sender: FDA-Public Use
  Company Number: US-PFIZER INC-2020154834

PATIENT
  Age: 56 Year
  Sex: Female
  Weight: 70.3 kg

DRUGS (1)
  1. PREGABALIN. [Suspect]
     Active Substance: PREGABALIN
     Indication: FIBROMYALGIA
     Dosage: 100 MG, 4X/DAY[TK ONE C PO QID (4 TIMES A DAY)]
     Route: 048

REACTIONS (3)
  - Drug ineffective [Unknown]
  - Pain [Unknown]
  - Malaise [Unknown]
